FAERS Safety Report 4435569-4 (Version None)
Quarter: 2004Q3

REPORT INFORMATION
  Report Type: 
  Country: None (occurrence: None)
  Receive Date: 20040827
  Receipt Date: 20040820
  Transmission Date: 20050211
  Serious: Yes (Death)
  Sender: FDA-Public Use
  Company Number: US-MERCK-0408USA01818

PATIENT
  Age: 16 Year
  Sex: Female

DRUGS (2)
  1. CANCIDAS [Suspect]
     Indication: PNEUMONIA FUNGAL
     Route: 065
  2. CANCIDAS [Suspect]
     Route: 065

REACTIONS (11)
  - ANAEMIA [None]
  - GASTROINTESTINAL HAEMORRHAGE [None]
  - HAEMATEMESIS [None]
  - HYPERBILIRUBINAEMIA [None]
  - MUCOSAL HAEMORRHAGE [None]
  - PORTAL HYPERTENSION [None]
  - RENAL IMPAIRMENT [None]
  - RESPIRATORY DISTRESS [None]
  - THROMBOCYTOPENIA [None]
  - TRACHEAL ULCER [None]
  - VARICES OESOPHAGEAL [None]
